FAERS Safety Report 9758377 (Version 1)
Quarter: 2013Q4

REPORT INFORMATION
  Report Type: Spontaneous
  Country: BR (occurrence: BR)
  Receive Date: 20131216
  Receipt Date: 20131216
  Transmission Date: 20140711
  Serious: Yes (Other)
  Sender: FDA-Public Use
  Company Number: BR-ASTRAZENECA-2013SE89035

PATIENT
  Age: 49 Year
  Sex: Female

DRUGS (1)
  1. BUPIVACAINE [Suspect]
     Indication: COMPLEX REGIONAL PAIN SYNDROME
     Route: 019

REACTIONS (5)
  - Anxiety [Recovered/Resolved]
  - Aphasia [Recovered/Resolved]
  - Tachypnoea [Recovered/Resolved]
  - Mydriasis [Recovered/Resolved]
  - Paraesthesia [Recovered/Resolved]
